FAERS Safety Report 8441808-5 (Version None)
Quarter: 2012Q2

REPORT INFORMATION
  Report Type: 
  Country: None (occurrence: None)
  Receive Date: 20120615
  Receipt Date: 20120508
  Transmission Date: 20120825
  Serious: Yes (Death, Other)
  Sender: FDA-Public Use
  Company Number: JP-CELGENEUS-087-50794-12042410

PATIENT
  Sex: Male
  Weight: 82 kg

DRUGS (15)
  1. CEFTRIAXONE NA [Concomitant]
     Route: 065
     Dates: start: 20120413, end: 20120415
  2. OMEGACIN [Concomitant]
     Route: 065
     Dates: start: 20120413, end: 20120415
  3. VIDAZA [Suspect]
     Dosage: 75 MILLIGRAM/SQ. METER
     Route: 041
     Dates: start: 20120405, end: 20120411
  4. ITRACONAZOLE [Concomitant]
     Route: 065
     Dates: end: 20120429
  5. LASIX [Concomitant]
     Route: 065
     Dates: start: 20120317, end: 20120429
  6. VIDAZA [Suspect]
     Dosage: 75 MILLIGRAM/SQ. METER
     Route: 058
     Dates: start: 20120112, end: 20120116
  7. MAGMITT [Concomitant]
     Route: 065
     Dates: end: 20120429
  8. RABEPRAZOLE SODIUM [Concomitant]
     Route: 065
     Dates: end: 20120429
  9. MIYA BM [Concomitant]
     Route: 065
     Dates: end: 20120428
  10. VIDAZA [Suspect]
     Dosage: 75 MILLIGRAM/SQ. METER
     Route: 058
     Dates: start: 20120224, end: 20120228
  11. CLARITHROMYCIN [Concomitant]
     Route: 065
     Dates: start: 20120313, end: 20120429
  12. CANDESARTAN CILEXETIL [Concomitant]
     Route: 065
     Dates: end: 20120428
  13. TEICOPLANIN [Concomitant]
     Route: 065
     Dates: start: 20120418, end: 20120430
  14. BACTRIM [Concomitant]
     Route: 065
     Dates: end: 20120429
  15. DESYREL [Concomitant]
     Route: 065
     Dates: start: 20120306, end: 20120316

REACTIONS (5)
  - NEUTROPHIL COUNT DECREASED [None]
  - WHITE BLOOD CELL COUNT DECREASED [None]
  - HAEMOGLOBIN DECREASED [None]
  - PNEUMONIA [None]
  - PLATELET COUNT DECREASED [None]
